FAERS Safety Report 13135997 (Version 1)
Quarter: 2017Q1

REPORT INFORMATION
  Report Type: Spontaneous
  Country: CA (occurrence: CA)
  Receive Date: 20170120
  Receipt Date: 20170120
  Transmission Date: 20170428
  Serious: Yes (Other)
  Sender: FDA-Public Use
  Company Number: CA-BAUSCH-BL-2017-001578

PATIENT
  Sex: Male
  Weight: 106.69 kg

DRUGS (3)
  1. ZAXINE (RIFAXIMIN) [Suspect]
     Active Substance: RIFAXIMIN
     Indication: HEPATIC CIRRHOSIS
     Route: 048
  2. ZAXINE (RIFAXIMIN) [Suspect]
     Active Substance: RIFAXIMIN
     Indication: LIVER DISORDER
  3. PREDNISONE. [Concomitant]
     Active Substance: PREDNISONE
     Indication: PRODUCT USED FOR UNKNOWN INDICATION

REACTIONS (3)
  - Hepatic cancer [Unknown]
  - Hepatic failure [Unknown]
  - Hepatic function abnormal [Unknown]
